FAERS Safety Report 20913868 (Version 1)
Quarter: 2022Q2

REPORT INFORMATION
  Report Type: Spontaneous
  Country: RU (occurrence: None)
  Receive Date: 20220604
  Receipt Date: 20220604
  Transmission Date: 20220721
  Serious: Yes (Other)
  Sender: FDA-Public Use
  Company Number: RU-ROCHE-3103664

PATIENT
  Sex: Male
  Weight: 66 kg

DRUGS (97)
  1. HERCEPTIN [Suspect]
     Active Substance: TRASTUZUMAB
     Indication: Neoplasm
     Route: 065
     Dates: start: 20180521, end: 20180615
  2. HERCEPTIN [Suspect]
     Active Substance: TRASTUZUMAB
     Route: 065
     Dates: start: 20180706
  3. HERCEPTIN [Suspect]
     Active Substance: TRASTUZUMAB
     Route: 065
     Dates: start: 20180727
  4. HERCEPTIN [Suspect]
     Active Substance: TRASTUZUMAB
     Route: 065
     Dates: start: 20180727
  5. HERCEPTIN [Suspect]
     Active Substance: TRASTUZUMAB
     Route: 065
     Dates: start: 20180925
  6. HERCEPTIN [Suspect]
     Active Substance: TRASTUZUMAB
     Route: 065
     Dates: start: 20181016
  7. HERCEPTIN [Suspect]
     Active Substance: TRASTUZUMAB
     Route: 065
     Dates: start: 20190517
  8. HERCEPTIN [Suspect]
     Active Substance: TRASTUZUMAB
     Dosage: 378 MG
     Route: 065
     Dates: start: 20190607
  9. HERCEPTIN [Suspect]
     Active Substance: TRASTUZUMAB
     Route: 065
     Dates: start: 20190627
  10. HERCEPTIN [Suspect]
     Active Substance: TRASTUZUMAB
     Dosage: 504 ON THE 1ST DAY
     Route: 065
     Dates: start: 20190628
  11. HERCEPTIN [Suspect]
     Active Substance: TRASTUZUMAB
     Dosage: 6 MG/KG - 378
     Route: 065
     Dates: start: 20190801
  12. HERCEPTIN [Suspect]
     Active Substance: TRASTUZUMAB
     Dosage: 6 MG/KG - 378
     Route: 065
     Dates: start: 20190912, end: 20191113
  13. HERCEPTIN [Suspect]
     Active Substance: TRASTUZUMAB
     Dosage: 6 MG/KG - 384 MG
     Route: 065
     Dates: start: 20191205, end: 20191226
  14. HERCEPTIN [Suspect]
     Active Substance: TRASTUZUMAB
     Dosage: 6 MG/KG - 396 MG
     Route: 065
     Dates: start: 20200116
  15. HERCEPTIN [Suspect]
     Active Substance: TRASTUZUMAB
     Dosage: 6 MG/KG - 396 MG
     Route: 065
     Dates: start: 20200206
  16. HERCEPTIN [Suspect]
     Active Substance: TRASTUZUMAB
     Dosage: 6 MG/KG - 396 MG
     Route: 065
     Dates: start: 20200227
  17. HERCEPTIN [Suspect]
     Active Substance: TRASTUZUMAB
     Dosage: 6 MG/KG - 396 MG
     Route: 065
     Dates: start: 20200319
  18. HERCEPTIN [Suspect]
     Active Substance: TRASTUZUMAB
     Dosage: 6 MG/KG - 396 MG
     Route: 065
     Dates: start: 20200409
  19. HERCEPTIN [Suspect]
     Active Substance: TRASTUZUMAB
     Dosage: 6 MG/KG - 396 MG
     Route: 065
     Dates: start: 20200430
  20. HERCEPTIN [Suspect]
     Active Substance: TRASTUZUMAB
     Dosage: 6 MG/KG - 396 MG
     Route: 065
     Dates: start: 20200521
  21. HERCEPTIN [Suspect]
     Active Substance: TRASTUZUMAB
     Dosage: 6 MG/KG - 396 MG
     Route: 065
     Dates: start: 20200611
  22. HERCEPTIN [Suspect]
     Active Substance: TRASTUZUMAB
     Dosage: 6 MG/KG - 390 MG
     Route: 065
     Dates: start: 20200723
  23. HERCEPTIN [Suspect]
     Active Substance: TRASTUZUMAB
     Route: 065
     Dates: start: 20200813
  24. HERCEPTIN [Suspect]
     Active Substance: TRASTUZUMAB
     Dosage: 6 MG/KG - 390 MG
     Route: 065
     Dates: start: 20200903
  25. HERCEPTIN [Suspect]
     Active Substance: TRASTUZUMAB
     Dosage: 6 MG/KG - 378 MG
     Route: 065
     Dates: start: 20200924
  26. HERCEPTIN [Suspect]
     Active Substance: TRASTUZUMAB
     Route: 065
     Dates: start: 20201015
  27. HERCEPTIN [Suspect]
     Active Substance: TRASTUZUMAB
     Route: 065
     Dates: start: 20201105
  28. HERCEPTIN [Suspect]
     Active Substance: TRASTUZUMAB
     Route: 065
     Dates: start: 20201126, end: 20201217
  29. HERCEPTIN [Suspect]
     Active Substance: TRASTUZUMAB
     Route: 065
     Dates: start: 20210106
  30. HERCEPTIN [Suspect]
     Active Substance: TRASTUZUMAB
     Route: 065
     Dates: start: 20210217
  31. HERCEPTIN [Suspect]
     Active Substance: TRASTUZUMAB
     Route: 065
     Dates: start: 20210310
  32. HERCEPTIN [Suspect]
     Active Substance: TRASTUZUMAB
     Route: 065
     Dates: start: 20210331
  33. HERCEPTIN [Suspect]
     Active Substance: TRASTUZUMAB
     Route: 065
     Dates: start: 20210421
  34. HERCEPTIN [Suspect]
     Active Substance: TRASTUZUMAB
     Route: 065
     Dates: start: 20210513
  35. HERCEPTIN [Suspect]
     Active Substance: TRASTUZUMAB
     Route: 065
     Dates: start: 20210603
  36. HERCEPTIN [Suspect]
     Active Substance: TRASTUZUMAB
     Route: 065
     Dates: start: 20210715
  37. HERCEPTIN [Suspect]
     Active Substance: TRASTUZUMAB
     Route: 065
     Dates: start: 20210805
  38. HERCEPTIN [Suspect]
     Active Substance: TRASTUZUMAB
     Route: 065
     Dates: start: 20210923
  39. HERCEPTIN [Suspect]
     Active Substance: TRASTUZUMAB
     Route: 065
     Dates: start: 20211013
  40. HERCEPTIN [Suspect]
     Active Substance: TRASTUZUMAB
     Route: 065
     Dates: start: 20220303
  41. HERCEPTIN [Suspect]
     Active Substance: TRASTUZUMAB
     Route: 065
     Dates: start: 20220324
  42. HERCEPTIN [Suspect]
     Active Substance: TRASTUZUMAB
     Route: 065
     Dates: start: 20220414
  43. HERCEPTIN [Suspect]
     Active Substance: TRASTUZUMAB
     Dosage: (8 MG/KG LOADING DOSE)
     Route: 065
     Dates: start: 20211111
  44. HERCEPTIN [Suspect]
     Active Substance: TRASTUZUMAB
     Dosage: (8 MG/KG LOADING DOSE)
     Route: 065
     Dates: start: 20210202
  45. HERCEPTIN [Suspect]
     Active Substance: TRASTUZUMAB
     Dosage: (8 MG/KG LOADING DOSE)
     Route: 065
     Dates: start: 20211223
  46. HERCEPTIN [Suspect]
     Active Substance: TRASTUZUMAB
     Dosage: (8 MG/KG LOADING DOSE)
     Route: 065
     Dates: start: 20220113
  47. HERCEPTIN [Suspect]
     Active Substance: TRASTUZUMAB
     Dosage: (8 MG/KG LOADING?DOSE)
     Route: 065
     Dates: start: 20220203
  48. PACLITAXEL [Suspect]
     Active Substance: PACLITAXEL
     Indication: Neoplasm
     Dosage: ON 25/APR/2018,4 CYCLES OF MCT WERE PERFORMED
     Route: 041
     Dates: start: 20180215
  49. PACLITAXEL [Suspect]
     Active Substance: PACLITAXEL
     Route: 042
     Dates: start: 20180521, end: 20180615
  50. PACLITAXEL [Suspect]
     Active Substance: PACLITAXEL
     Route: 042
     Dates: start: 20180706
  51. PACLITAXEL [Suspect]
     Active Substance: PACLITAXEL
     Route: 042
     Dates: start: 20180706
  52. PACLITAXEL [Suspect]
     Active Substance: PACLITAXEL
     Route: 042
     Dates: start: 20180727
  53. TAMOXIFEN [Suspect]
     Active Substance: TAMOXIFEN
     Indication: Neoplasm
     Route: 065
  54. ZOLADEX [Suspect]
     Active Substance: GOSERELIN ACETATE
     Indication: Neoplasm
     Route: 058
  55. PERTUZUMAB [Suspect]
     Active Substance: PERTUZUMAB
     Indication: Neoplasm
     Dosage: LOADING DOSE 840 MG
     Route: 042
  56. PERTUZUMAB [Suspect]
     Active Substance: PERTUZUMAB
     Route: 042
     Dates: start: 20190628
  57. PERTUZUMAB [Suspect]
     Active Substance: PERTUZUMAB
     Route: 042
     Dates: start: 20190801
  58. PERTUZUMAB [Suspect]
     Active Substance: PERTUZUMAB
     Route: 042
     Dates: start: 20190912, end: 20191113
  59. PERTUZUMAB [Suspect]
     Active Substance: PERTUZUMAB
     Route: 042
     Dates: start: 20191205, end: 20191226
  60. PERTUZUMAB [Suspect]
     Active Substance: PERTUZUMAB
     Route: 042
     Dates: start: 20200116
  61. PERTUZUMAB [Suspect]
     Active Substance: PERTUZUMAB
     Route: 042
     Dates: start: 20200206
  62. PERTUZUMAB [Suspect]
     Active Substance: PERTUZUMAB
     Route: 042
     Dates: start: 20200227
  63. PERTUZUMAB [Suspect]
     Active Substance: PERTUZUMAB
     Route: 042
     Dates: start: 20200319
  64. PERTUZUMAB [Suspect]
     Active Substance: PERTUZUMAB
     Route: 042
     Dates: start: 20200409
  65. PERTUZUMAB [Suspect]
     Active Substance: PERTUZUMAB
     Route: 042
     Dates: start: 20200430
  66. PERTUZUMAB [Suspect]
     Active Substance: PERTUZUMAB
     Route: 042
     Dates: start: 20200521
  67. PERTUZUMAB [Suspect]
     Active Substance: PERTUZUMAB
     Route: 042
     Dates: start: 20200611
  68. PERTUZUMAB [Suspect]
     Active Substance: PERTUZUMAB
     Route: 042
     Dates: start: 20200723
  69. PERTUZUMAB [Suspect]
     Active Substance: PERTUZUMAB
     Route: 042
     Dates: start: 20200813
  70. PERTUZUMAB [Suspect]
     Active Substance: PERTUZUMAB
     Route: 042
     Dates: start: 20200903
  71. PERTUZUMAB [Suspect]
     Active Substance: PERTUZUMAB
     Route: 042
     Dates: start: 20200924
  72. PERTUZUMAB [Suspect]
     Active Substance: PERTUZUMAB
     Route: 042
     Dates: start: 20201015
  73. PERTUZUMAB [Suspect]
     Active Substance: PERTUZUMAB
     Route: 042
     Dates: start: 20201105
  74. PERTUZUMAB [Suspect]
     Active Substance: PERTUZUMAB
     Route: 042
     Dates: start: 20201126, end: 20201217
  75. PERTUZUMAB [Suspect]
     Active Substance: PERTUZUMAB
     Route: 042
     Dates: start: 20210106
  76. PERTUZUMAB [Suspect]
     Active Substance: PERTUZUMAB
     Route: 042
     Dates: start: 20210217
  77. PERTUZUMAB [Suspect]
     Active Substance: PERTUZUMAB
     Route: 042
     Dates: start: 20210310
  78. PERTUZUMAB [Suspect]
     Active Substance: PERTUZUMAB
     Route: 042
     Dates: start: 20210331
  79. PERTUZUMAB [Suspect]
     Active Substance: PERTUZUMAB
     Route: 042
     Dates: start: 20210421
  80. PERTUZUMAB [Suspect]
     Active Substance: PERTUZUMAB
     Route: 042
     Dates: start: 20220303
  81. PERTUZUMAB [Suspect]
     Active Substance: PERTUZUMAB
     Route: 042
     Dates: start: 20220324
  82. PERTUZUMAB [Suspect]
     Active Substance: PERTUZUMAB
     Route: 042
     Dates: start: 20220414
  83. PERTUZUMAB [Suspect]
     Active Substance: PERTUZUMAB
     Dosage: (840 MG LOADING DOSE)
     Route: 042
     Dates: start: 20211111
  84. PERTUZUMAB [Suspect]
     Active Substance: PERTUZUMAB
     Dosage: (840 MG LOADING DOSE)
     Route: 042
     Dates: start: 20210202
  85. PERTUZUMAB [Suspect]
     Active Substance: PERTUZUMAB
     Dosage: (840 MG LOADING DOSE)
     Route: 042
     Dates: start: 20211223
  86. PERTUZUMAB [Suspect]
     Active Substance: PERTUZUMAB
     Dosage: (840 MG LOADING DOSE)
     Route: 042
     Dates: start: 20220113
  87. PERTUZUMAB [Suspect]
     Active Substance: PERTUZUMAB
     Route: 042
     Dates: start: 20220203
  88. DOCETAXEL [Suspect]
     Active Substance: DOCETAXEL
     Indication: Neoplasm
     Dosage: 75-100 MG/M2
     Route: 042
     Dates: start: 20190627
  89. DOCETAXEL [Suspect]
     Active Substance: DOCETAXEL
     Route: 042
     Dates: start: 20190628
  90. DOCETAXEL [Suspect]
     Active Substance: DOCETAXEL
     Route: 042
     Dates: start: 20190801
  91. DOCETAXEL [Suspect]
     Active Substance: DOCETAXEL
     Route: 042
     Dates: start: 20190822
  92. DOCETAXEL [Suspect]
     Active Substance: DOCETAXEL
     Dosage: 75 MG/M2  TO 124 MG
     Route: 041
     Dates: start: 20190912, end: 20191113
  93. DOCETAXEL [Suspect]
     Active Substance: DOCETAXEL
     Dosage: 75 MG/M2 ON THE 1ST DAY - 125 MG
     Route: 041
     Dates: start: 20191205, end: 20191226
  94. DOCETAXEL [Suspect]
     Active Substance: DOCETAXEL
     Dosage: 75 MG/M2 TO 127 MG
     Route: 041
     Dates: start: 20200116
  95. DOCETAXEL [Suspect]
     Active Substance: DOCETAXEL
     Dosage: 75 MG/M2 TO 127 MG
     Route: 041
     Dates: start: 20200206
  96. DOCETAXEL [Suspect]
     Active Substance: DOCETAXEL
     Dosage: 75 MG/M2 TO 127 MG
     Route: 041
     Dates: start: 20200227
  97. DOCETAXEL [Suspect]
     Active Substance: DOCETAXEL
     Dosage: 75 MG/M2 TO 127 MG
     Route: 041
     Dates: start: 20200319

REACTIONS (13)
  - Breast cancer [Unknown]
  - Lymphadenopathy [Unknown]
  - Pelvic fracture [Unknown]
  - Lung neoplasm malignant [Unknown]
  - Metastasis [Unknown]
  - Disease progression [Unknown]
  - Benign ovarian tumour [Unknown]
  - Neurotoxicity [Unknown]
  - Neoplasm [Unknown]
  - Hyperplasia [Unknown]
  - Rosai-Dorfman syndrome [Unknown]
  - Haemangioma [Unknown]
  - Bone disorder [Unknown]
